FAERS Safety Report 4332261-1 (Version None)
Quarter: 2004Q1

REPORT INFORMATION
  Report Type: 
  Country: None (occurrence: None)
  Receive Date: 20040331
  Receipt Date: 20040318
  Transmission Date: 20041129
  Serious: Yes (Death)
  Sender: FDA-Public Use
  Company Number: 2004204292CA

PATIENT
  Age: 4 Year
  Sex: Male
  Weight: 41.5 kg

DRUGS (1)
  1. GENOTROPIN [Suspect]
     Indication: PRADER-WILLI SYNDROME
     Dosage: 0.3 MG, QD FOR 2 WEEKS, SUBCUTANEOUS; SEE IMAGE
     Route: 058

REACTIONS (13)
  - BETA HAEMOLYTIC STREPTOCOCCAL INFECTION [None]
  - BRONCHOPNEUMONIA [None]
  - CULTURE POSITIVE [None]
  - DYSPNOEA [None]
  - FATIGUE [None]
  - HEADACHE [None]
  - HYPERHIDROSIS [None]
  - HYPOXIA [None]
  - SNORING [None]
  - SPLEEN CONGESTION [None]
  - SUBDURAL HAEMATOMA [None]
  - SUDDEN DEATH [None]
  - VENTRICULAR HYPERTROPHY [None]
